FAERS Safety Report 7492702-8 (Version None)
Quarter: 2011Q2

REPORT INFORMATION
  Report Type: 
  Country: None (occurrence: None)
  Receive Date: 20110519
  Receipt Date: 20110511
  Transmission Date: 20111010
  Serious: Yes (Other)
  Sender: FDA-Public Use
  Company Number: NO-NOVOPROD-327978

PATIENT
  Age: 30 Year
  Sex: Female
  Weight: 92 kg

DRUGS (5)
  1. VICTOZA [Suspect]
     Indication: TYPE 2 DIABETES MELLITUS
     Dosage: 0.6 MG, QD
  2. METFORMIN HCL [Concomitant]
     Dosage: 500 MG, QD
     Route: 065
  3. VICTOZA [Suspect]
     Dosage: 0.6 MG, QD
  4. LEVEMIR [Concomitant]
     Indication: TYPE 2 DIABETES MELLITUS
     Dosage: 26 IU, QD
     Route: 065
  5. VICTOZA [Suspect]
     Dosage: 1.2 MG, QD

REACTIONS (5)
  - WEIGHT DECREASED [None]
  - DECREASED APPETITE [None]
  - VOMITING [None]
  - NAUSEA [None]
  - BLOOD GLUCOSE INCREASED [None]
